FAERS Safety Report 6213297-2 (Version None)
Quarter: 2009Q2

REPORT INFORMATION
  Report Type: 
  Country: None (occurrence: None)
  Receive Date: 20090603
  Receipt Date: 20090521
  Transmission Date: 20091009
  Serious: Yes (Hospitalization)
  Sender: FDA-Public Use
  Company Number: US-ELI_LILLY_AND_COMPANY-US200903004294

PATIENT
  Sex: Female

DRUGS (5)
  1. CYMBALTA [Suspect]
     Dosage: 60 MG, 2/D
     Route: 048
  2. KLONOPIN [Concomitant]
  3. ULTRAM [Concomitant]
  4. AMBIEN [Concomitant]
  5. PERCOCET [Concomitant]

REACTIONS (1)
  - CONVERSION DISORDER [None]
